FAERS Safety Report 18755868 (Version 2)
Quarter: 2021Q1

REPORT INFORMATION
  Report Type: Report from Study
  Country: MX (occurrence: MX)
  Receive Date: 20210119
  Receipt Date: 20210216
  Transmission Date: 20210419
  Serious: Yes (Other)
  Sender: FDA-Public Use
  Company Number: NVSC2021MX009237

PATIENT
  Sex: Female
  Weight: 57 kg

DRUGS (1)
  1. ACLASTA [Suspect]
     Active Substance: ZOLEDRONIC ACID
     Indication: OSTEOPOROSIS
     Dosage: 1 DF, Q12MO
     Route: 042
     Dates: start: 2010

REACTIONS (5)
  - Fall [Unknown]
  - Fracture [Unknown]
  - Road traffic accident [Unknown]
  - Joint injury [Unknown]
  - Chest injury [Unknown]

NARRATIVE: CASE EVENT DATE: 2010
